FAERS Safety Report 5118475-1 (Version None)
Quarter: 2006Q4

REPORT INFORMATION
  Report Type: 
  Country: None (occurrence: None)
  Receive Date: 20061002
  Receipt Date: 20060918
  Transmission Date: 20070319
  Serious: Yes (Hospitalization, Other)
  Sender: FDA-Public Use
  Company Number: PHRM2006FR02595

PATIENT
  Age: 71 Year
  Sex: Male

DRUGS (6)
  1. COMTAN [Suspect]
     Dosage: 600 MG/DAY
     Route: 048
  2. PARLODEL [Suspect]
     Dosage: 60 MG/DAY
  3. EFFERALGAN [Suspect]
     Dosage: 4 G/DAY
     Route: 048
  4. MODOPAR [Suspect]
     Dosage: 75/300 MG/DAY
     Route: 048
  5. MODOPAR [Suspect]
     Dosage: 75/300 MG/DAY
     Route: 048
  6. URBANYL [Suspect]
     Dosage: 10 MG/DAY
     Route: 048

REACTIONS (5)
  - ANAEMIA [None]
  - ANXIETY [None]
  - DYSPNOEA [None]
  - LEUKAEMIA [None]
  - SINUS ARRHYTHMIA [None]
